FAERS Safety Report 9649327 (Version 2)
Quarter: 2013Q4

REPORT INFORMATION
  Report Type: Spontaneous
  Country: US (occurrence: US)
  Receive Date: 20131028
  Receipt Date: 20131030
  Transmission Date: 20140711
  Serious: Yes (Other)
  Sender: FDA-Public Use
  Company Number: US-PFIZER INC-2013306601

PATIENT
  Age: 58 Year
  Sex: Female
  Weight: 74.83 kg

DRUGS (15)
  1. AMITRIPTYLINE [Concomitant]
     Dosage: 50 MG, UNK
  2. GRALISE [Concomitant]
     Dosage: UNK, 1X/DAY
  3. VITAMIN B12 [Concomitant]
     Dosage: UNK, MONTHLY
     Route: 030
  4. VITAMIN B12 [Concomitant]
     Dosage: UNK
     Route: 048
  5. BIOTIN [Concomitant]
     Dosage: UNK, 1X/DAY
  6. CITRACAL + D [Concomitant]
     Dosage: UNK, 1X/DAY
  7. ADVIL GELCAPS [Suspect]
     Indication: BACK PAIN
     Dosage: UNK
     Route: 048
  8. NORVASC [Concomitant]
     Indication: HYPERTENSION
     Dosage: 10 MG, 1X/DAY
  9. LASIX [Concomitant]
     Indication: HYPERTENSION
     Dosage: 10 MG, UNK
  10. UREX [Concomitant]
     Dosage: 1 G, 2X/DAY
  11. OMEPRAZOLE [Concomitant]
     Dosage: 40 MG, 2X/DAY
  12. POTASSIUM CHLORIDE [Concomitant]
     Dosage: 20 UG, 2X/DAY
  13. SINGULAIR [Concomitant]
     Dosage: UNK, 1X/DAY
  14. SPIRIVA [Concomitant]
     Dosage: UNK, 1X/DAY
  15. MAG-OX [Concomitant]
     Dosage: UNK, 1X/DAY

REACTIONS (1)
  - Neoplasm malignant [Recovered/Resolved]
